FAERS Safety Report 24435125 (Version 1)
Quarter: 2024Q4

REPORT INFORMATION
  Report Type: Spontaneous
  Country: CN (occurrence: CN)
  Receive Date: 20241014
  Receipt Date: 20241014
  Transmission Date: 20250114
  Serious: Yes (Other)
  Sender: ABBVIE
  Company Number: CN-ABBVIE-5961304

PATIENT
  Age: 73 Year
  Sex: Female

DRUGS (1)
  1. VENETOCLAX [Suspect]
     Active Substance: VENETOCLAX
     Indication: Acute myeloid leukaemia
     Dosage: 100 MILLIGRAM
     Route: 048
     Dates: start: 20240712, end: 20240718

REACTIONS (3)
  - Granulocytopenia [Unknown]
  - Myelosuppression [Recovering/Resolving]
  - Pancytopenia [Unknown]

NARRATIVE: CASE EVENT DATE: 20240723
